FAERS Safety Report 10790552 (Version 3)
Quarter: 2015Q1

REPORT INFORMATION
  Report Type: Spontaneous
  Country: JP (occurrence: JP)
  Receive Date: 20150212
  Receipt Date: 20150304
  Transmission Date: 20150721
  Serious: Yes (Hospitalization, Other)
  Sender: FDA-Public Use
  Company Number: JP-GLAXOSMITHKLINE-JP2015JPN014216

PATIENT
  Age: 6 Year
  Sex: Female
  Weight: 16 kg

DRUGS (20)
  1. LAMICTAL [Suspect]
     Active Substance: LAMOTRIGINE
     Dosage: 4 MG, BID
     Route: 048
     Dates: start: 20120110, end: 20120209
  2. EXCEGRAN [Concomitant]
     Active Substance: ZONISAMIDE
     Dosage: 15 MG, BID
     Dates: start: 20120829, end: 20121002
  3. EXCEGRAN [Concomitant]
     Active Substance: ZONISAMIDE
     Dosage: 20 MG, 1D
     Dates: start: 20121003, end: 20121112
  4. LAMICTAL [Suspect]
     Active Substance: LAMOTRIGINE
     Dosage: 2 MG, BID
     Route: 048
     Dates: start: 20111115, end: 20111212
  5. LAMICTAL [Suspect]
     Active Substance: LAMOTRIGINE
     Dosage: UNK UNK, BID
     Route: 048
     Dates: start: 20111213, end: 20120109
  6. LAMICTAL [Suspect]
     Active Substance: LAMOTRIGINE
     Dosage: 16 MG, 1D
     Route: 048
     Dates: start: 20120515, end: 20120604
  7. LAMICTAL [Suspect]
     Active Substance: LAMOTRIGINE
     Dosage: 9 MG, BID
     Route: 048
     Dates: start: 20120605, end: 20120717
  8. LAMICTAL [Suspect]
     Active Substance: LAMOTRIGINE
     Dosage: 12.5 MG, BID
     Route: 048
     Dates: start: 20120829, end: 20130916
  9. EXCEGRAN [Concomitant]
     Active Substance: ZONISAMIDE
     Dosage: 15 MG, 1D
     Dates: start: 20121113, end: 20121210
  10. EXCEGRAN [Concomitant]
     Active Substance: ZONISAMIDE
     Dosage: 10 MG, 1D
     Dates: start: 20121211, end: 20130225
  11. MYSTAN [Concomitant]
     Active Substance: CLOBAZAM
     Indication: EPILEPSY
     Dosage: 1 MG, BID
     Dates: start: 20120314
  12. LAMICTAL [Suspect]
     Active Substance: LAMOTRIGINE
     Indication: EPILEPSY
     Dosage: 2 MG, QD
     Route: 048
     Dates: start: 20111101, end: 20111114
  13. LAMICTAL [Suspect]
     Active Substance: LAMOTRIGINE
     Dosage: UNK UNK, BID
     Route: 048
     Dates: start: 20120210, end: 20120227
  14. LAMICTAL [Suspect]
     Active Substance: LAMOTRIGINE
     Dosage: 15 MG, BID
     Route: 048
     Dates: start: 20130917, end: 20150202
  15. LAMICTAL [Suspect]
     Active Substance: LAMOTRIGINE
     Dosage: 7 MG, BID
     Route: 048
     Dates: start: 20120403, end: 20120514
  16. EXCEGRAN [Concomitant]
     Active Substance: ZONISAMIDE
     Dosage: 20 MG, BID
     Dates: start: 20120718, end: 20120828
  17. EXCEGRAN [Concomitant]
     Active Substance: ZONISAMIDE
     Dosage: 5 MG, 1D
     Dates: start: 20130226, end: 201303
  18. EXCEGRAN [Concomitant]
     Active Substance: ZONISAMIDE
     Dosage: 25 MG, BID
     Dates: start: 20111101, end: 20120717
  19. LAMICTAL [Suspect]
     Active Substance: LAMOTRIGINE
     Dosage: UNK UNK, BID
     Route: 048
     Dates: start: 20120228, end: 20120402
  20. LAMICTAL [Suspect]
     Active Substance: LAMOTRIGINE
     Dosage: 10 MG, BID
     Route: 048
     Dates: start: 20120718, end: 20120828

REACTIONS (14)
  - Loss of consciousness [Recovered/Resolved]
  - Cyanosis [Recovered/Resolved]
  - Somnolence [Recovered/Resolved]
  - Pyrexia [Recovered/Resolved]
  - Drug-induced liver injury [Recovering/Resolving]
  - Vomiting [Recovered/Resolved]
  - Hepatic function abnormal [Recovered/Resolved]
  - Disorientation [Recovered/Resolved]
  - Seizure [Recovered/Resolved]
  - Electroencephalogram abnormal [Unknown]
  - Staring [Recovered/Resolved]
  - Hepatic enzyme increased [Recovering/Resolving]
  - Altered state of consciousness [Recovered/Resolved]
  - Gaze palsy [Recovered/Resolved]

NARRATIVE: CASE EVENT DATE: 201502
